FAERS Safety Report 5746871-8 (Version None)
Quarter: 2008Q2

REPORT INFORMATION
  Report Type: 
  Country: None (occurrence: None)
  Receive Date: 20080522
  Receipt Date: 20080515
  Transmission Date: 20081010
  Serious: Yes (Other)
  Sender: FDA-Public Use
  Company Number: DE-PFIZER INC-2008006403

PATIENT
  Sex: Male

DRUGS (2)
  1. XALATAN [Suspect]
     Route: 047
  2. ASPIRIN [Concomitant]

REACTIONS (3)
  - ATRIAL FLUTTER [None]
  - BRADYCARDIA [None]
  - CONDITION AGGRAVATED [None]
